FAERS Safety Report 8707724 (Version 3)
Quarter: 2013Q1

REPORT INFORMATION
  Report Type: Spontaneous
  Country: US (occurrence: US)
  Receive Date: 20120806
  Receipt Date: 20130318
  Transmission Date: 20140127
  Serious: No
  Sender: FDA-Public Use
  Company Number: US-BIOGENIDEC-2012BI027736

PATIENT
  Sex: Male

DRUGS (2)
  1. TYSABRI [Suspect]
     Indication: MULTIPLE SCLEROSIS
     Route: 042
     Dates: start: 20100630, end: 20120530
  2. TYSABRI [Suspect]
     Indication: MULTIPLE SCLEROSIS
     Route: 042
     Dates: start: 20121220

REACTIONS (6)
  - Blood count abnormal [Not Recovered/Not Resolved]
  - Platelet count decreased [Recovered/Resolved]
  - Platelet count increased [Recovered/Resolved with Sequelae]
  - Abasia [Recovered/Resolved with Sequelae]
  - Drug ineffective [Recovered/Resolved]
  - Fatigue [Recovered/Resolved with Sequelae]
